FAERS Safety Report 12084514 (Version 1)
Quarter: 2016Q1

REPORT INFORMATION
  Report Type: Spontaneous
  Country: IT (occurrence: IT)
  Receive Date: 20160217
  Receipt Date: 20160217
  Transmission Date: 20160526
  Serious: Yes (Hospitalization)
  Sender: FDA-Public Use
  Company Number: IT-LABORATOIRE HRA PHARMA-1047971

PATIENT
  Age: 24 Year
  Sex: Female

DRUGS (1)
  1. ELLA [Suspect]
     Active Substance: ULIPRISTAL ACETATE
     Route: 048
     Dates: start: 20160108, end: 20160108

REACTIONS (1)
  - Pelvic pain [None]

NARRATIVE: CASE EVENT DATE: 20160110
